FAERS Safety Report 12092506 (Version 1)
Quarter: 2016Q1

REPORT INFORMATION
  Report Type: Spontaneous
  Country: US (occurrence: None)
  Receive Date: 20160218
  Receipt Date: 20160218
  Transmission Date: 20160526
  Serious: No
  Sender: FDA-Public Use
  Company Number: None

PATIENT
  Age: 26 Year
  Sex: Female
  Weight: 60.33 kg

DRUGS (2)
  1. ICY HOT MEDICATED NO MESS APPLICATOR [Suspect]
     Active Substance: MENTHOL
     Indication: MUSCLE TIGHTNESS
     Dates: start: 20151021, end: 20151021
  2. ICY HOT MEDICATED NO MESS APPLICATOR [Suspect]
     Active Substance: MENTHOL
     Indication: MYALGIA
     Dates: start: 20151021, end: 20151021

REACTIONS (2)
  - Application site burn [None]
  - Application site discolouration [None]

NARRATIVE: CASE EVENT DATE: 20151021
